FAERS Safety Report 9353235 (Version 1)
Quarter: 2013Q2

REPORT INFORMATION
  Report Type: Spontaneous
  Country: US (occurrence: US)
  Receive Date: 20130618
  Receipt Date: 20130618
  Transmission Date: 20140414
  Serious: Yes (Hospitalization)
  Sender: FDA-Public Use
  Company Number: US-PFIZER INC-2013181553

PATIENT
  Age: 86 Year
  Sex: Male

DRUGS (2)
  1. TIKOSYN [Suspect]
     Dosage: 125 UG, 2X/DAY
  2. ASA [Concomitant]

REACTIONS (1)
  - Myocardial infarction [Unknown]
